FAERS Safety Report 5443398-8 (Version None)
Quarter: 2007Q3

REPORT INFORMATION
  Report Type: 
  Country: None (occurrence: None)
  Receive Date: 20070905
  Receipt Date: 20070830
  Transmission Date: 20080115
  Serious: Yes (Other)
  Sender: FDA-Public Use
  Company Number: B0481971A

PATIENT
  Age: 73 Year
  Sex: Female

DRUGS (4)
  1. VALTREX [Suspect]
     Indication: HERPES ZOSTER
     Dosage: 1000MG THREE TIMES PER DAY
     Route: 048
     Dates: start: 20070719, end: 20070722
  2. LOXONIN [Concomitant]
     Indication: HERPES ZOSTER
     Dosage: 60MG THREE TIMES PER DAY
     Route: 048
     Dates: start: 20070719, end: 20070721
  3. METHYCOBAL [Concomitant]
     Indication: HERPES ZOSTER
     Dosage: 500MCG THREE TIMES PER DAY
     Route: 048
     Dates: start: 20070719
  4. ALLEGRA [Concomitant]
     Indication: PRURITUS
     Dosage: 60MG TWICE PER DAY
     Route: 048
     Dates: start: 20070721

REACTIONS (1)
  - DEMENTIA [None]
